FAERS Safety Report 15854626 (Version 3)
Quarter: 2019Q3

REPORT INFORMATION
  Report Type: Spontaneous
  Country: TW (occurrence: TW)
  Receive Date: 20190122
  Receipt Date: 20190906
  Transmission Date: 20191004
  Serious: Yes (Hospitalization, Other)
  Sender: FDA-Public Use
  Company Number: TW-BRISTOL-MYERS SQUIBB COMPANY-BMS-2019-005373

PATIENT
  Age: 66 Year
  Sex: Male

DRUGS (3)
  1. OPDIVO [Suspect]
     Active Substance: NIVOLUMAB
     Indication: RENAL CELL CARCINOMA
     Dosage: 3 MG/KG, Q3WK, TOTAL 4 CYCLES
     Route: 042
     Dates: start: 20150930, end: 201512
  2. OPDIVO [Suspect]
     Active Substance: NIVOLUMAB
     Indication: PRODUCT USED FOR UNKNOWN INDICATION
     Dosage: 3 MG/KG, Q2WK
     Route: 042
     Dates: start: 20151222
  3. YERVOY [Suspect]
     Active Substance: IPILIMUMAB
     Indication: RENAL CELL CARCINOMA
     Dosage: 1 MILLIGRAM/KILOGRAM, Q3WK, TOTAL 4 CYCLES)
     Route: 042
     Dates: start: 20150930, end: 201512

REACTIONS (6)
  - Asthenia [Recovering/Resolving]
  - Fatigue [Recovering/Resolving]
  - Dizziness [Unknown]
  - Vomiting [Unknown]
  - Laboratory test abnormal [Unknown]
  - Pyrexia [Unknown]

NARRATIVE: CASE EVENT DATE: 20151224
